FAERS Safety Report 19743791 (Version 1)
Quarter: 2021Q3

REPORT INFORMATION
  Report Type: Spontaneous
  Country: CN (occurrence: CN)
  Receive Date: 20210824
  Receipt Date: 20210824
  Transmission Date: 20211014
  Serious: Yes (Hospitalization)
  Sender: FDA-Public Use
  Company Number: CN-BAXTER-2021BAX026191

PATIENT
  Age: 5 Year
  Sex: Female
  Weight: 17.9 kg

DRUGS (6)
  1. 5% GLUCOSE AND 0.9% SODIUM CHLORIDE INJECTION [Suspect]
     Active Substance: DEXTROSE\SODIUM CHLORIDE
     Dosage: ENDOXAN 0.154 G + GLUCOSE AND SODIUM CHLORIDE (4:1) 250 ML.
     Route: 041
     Dates: start: 20210712, end: 20210716
  2. PHARMORUBICIN [Suspect]
     Active Substance: EPIRUBICIN
     Indication: ANAPLASTIC LARGE-CELL LYMPHOMA
     Dosage: PHARMORUBICIN 19.3 MG + 0.9% SODIUM CHLORIDE 250 ML
     Route: 041
     Dates: start: 20210715, end: 20210716
  3. 0.9% SODIUM CHLORIDE INJECTION [Suspect]
     Active Substance: SODIUM CHLORIDE
     Indication: MEDICATION DILUTION
     Dosage: PHARMORUBICIN 19.3 MG + 0.9% SODIUM CHLORIDE 250 ML
     Route: 041
     Dates: start: 20210715, end: 20210716
  4. METHOTREXATE. [Suspect]
     Active Substance: METHOTREXATE
     Indication: ANAPLASTIC LARGE-CELL LYMPHOMA
     Dosage: METHOTREXATE 2.855 G + GLUCOSE AND SODIUM CHLORIDE (4:1) 2350ML
     Route: 041
     Dates: start: 20210712, end: 20210712
  5. ENDOXAN [Suspect]
     Active Substance: CYCLOPHOSPHAMIDE
     Indication: ANAPLASTIC LARGE-CELL LYMPHOMA
     Dosage: ENDOXAN 0.154 G + GLUCOSE AND SODIUM CHLORIDE (4:1) 250 ML
     Route: 041
     Dates: start: 20210712, end: 20210716
  6. 5% GLUCOSE AND 0.9% SODIUM CHLORIDE INJECTION [Suspect]
     Active Substance: DEXTROSE\SODIUM CHLORIDE
     Indication: MEDICATION DILUTION
     Dosage: METHOTREXATE 2.855 G + GLUCOSE AND SODIUM CHLORIDE (4:1) 2350ML
     Route: 041
     Dates: start: 20210712, end: 20210712

REACTIONS (1)
  - Myelosuppression [Recovering/Resolving]

NARRATIVE: CASE EVENT DATE: 20210724
